FAERS Safety Report 21889938 (Version 1)
Quarter: 2023Q1

REPORT INFORMATION
  Report Type: Report from Study
  Country: US (occurrence: US)
  Receive Date: 20230120
  Receipt Date: 20230120
  Transmission Date: 20230417
  Serious: No
  Sender: FDA-Public Use
  Company Number: US-ABBVIE-4244098

PATIENT
  Age: 45 Year
  Sex: Female

DRUGS (1)
  1. HUMIRA [Suspect]
     Active Substance: ADALIMUMAB
     Indication: Ankylosing spondylitis
     Dosage: CITRATE FREE, ONSET DATE FOR WITHDRAWL, NO ENERGY, CARDIAC ISSUES WAS 2022.
     Route: 058
     Dates: start: 20220215

REACTIONS (4)
  - Asthenia [Unknown]
  - Pneumonia [Unknown]
  - Social avoidant behaviour [Unknown]
  - Cardiac disorder [Unknown]

NARRATIVE: CASE EVENT DATE: 20220801
